FAERS Safety Report 8019841-7 (Version None)
Quarter: 2012Q1

REPORT INFORMATION
  Report Type: 
  Country: None (occurrence: None)
  Receive Date: 20120103
  Receipt Date: 20111230
  Transmission Date: 20120608
  Serious: No
  Sender: FDA-Public Use
  Company Number: US-BAYER-2012-000357

PATIENT
  Age: 52 Year
  Sex: Female

DRUGS (3)
  1. MAGNEVIST [Suspect]
     Indication: INTERVERTEBRAL DISC DEGENERATION
  2. MAGNEVIST [Suspect]
     Indication: NUCLEAR MAGNETIC RESONANCE IMAGING
     Dosage: 15 ML, ONCE
     Dates: start: 20111229
  3. MAGNEVIST [Suspect]
     Indication: BACK PAIN

REACTIONS (2)
  - PRURITUS GENERALISED [None]
  - ERYTHEMA [None]
